FAERS Safety Report 16404148 (Version 1)
Quarter: 2019Q3

REPORT INFORMATION
  Report Type: Spontaneous
  Country: US (occurrence: US)
  Receive Date: 20190606
  Receipt Date: 20190606
  Transmission Date: 20191004
  Serious: Yes (Other)
  Sender: FDA-Public Use
  Company Number: None

PATIENT
  Age: 78 Year
  Sex: Female
  Weight: 57.6 kg

DRUGS (5)
  1. DIAZEPAM. [Concomitant]
     Active Substance: DIAZEPAM
  2. ALENDRONATE SODIUM. [Concomitant]
     Active Substance: ALENDRONATE SODIUM
  3. FAMOTIDINE. [Concomitant]
     Active Substance: FAMOTIDINE
  4. IRBESARTAN. [Concomitant]
     Active Substance: IRBESARTAN
  5. IBRANCE [Suspect]
     Active Substance: PALBOCICLIB
     Indication: BREAST CANCER
     Route: 048
     Dates: start: 20180201

REACTIONS (3)
  - Medical diet [None]
  - Decreased appetite [None]
  - Amnesia [None]
